FAERS Safety Report 6687220-0 (Version None)
Quarter: 2010Q2

REPORT INFORMATION
  Report Type: 
  Country: None (occurrence: None)
  Receive Date: 20100419
  Receipt Date: 20100312
  Transmission Date: 20101027
  Serious: No
  Sender: FDA-Public Use
  Company Number: US-ABBOTT-10P-163-0632515-00

PATIENT
  Sex: Male
  Weight: 81.72 kg

DRUGS (6)
  1. ZEMPLAR [Suspect]
     Indication: HYPERPARATHYROIDISM
     Dates: start: 20100201
  2. DIOVAN [Concomitant]
     Indication: RENAL FAILURE
  3. TRICOR [Concomitant]
     Indication: BLOOD CHOLESTEROL INCREASED
  4. ATENOLOL [Concomitant]
     Indication: CORONARY ARTERY BYPASS
  5. ASPIRIN [Concomitant]
     Indication: CORONARY ARTERY BYPASS
  6. LIPITOR [Concomitant]
     Indication: HYPERCHOLESTEROLAEMIA

REACTIONS (2)
  - DIARRHOEA [None]
  - WEIGHT DECREASED [None]
